FAERS Safety Report 20626460 (Version 2)
Quarter: 2022Q2

REPORT INFORMATION
  Report Type: Report from Study
  Country: US (occurrence: US)
  Receive Date: 20220323
  Receipt Date: 20220613
  Transmission Date: 20220721
  Serious: No
  Sender: FDA-Public Use
  Company Number: US-NOVARTISTESTPH-NVSC2022US066087

PATIENT
  Sex: Female

DRUGS (2)
  1. COSENTYX [Suspect]
     Active Substance: SECUKINUMAB
     Indication: Psoriasis
     Dosage: UNK
     Route: 065
     Dates: start: 202106
  2. COSENTYX [Suspect]
     Active Substance: SECUKINUMAB
     Dosage: 300 MG, QW(EVERY WEEK X 5 WEEKS THEN EVERY 4 WEEKS)
     Route: 058
     Dates: start: 20220317

REACTIONS (3)
  - Psoriasis [Recovering/Resolving]
  - Pruritus [Unknown]
  - Dry skin [Unknown]
